FAERS Safety Report 5732373-1 (Version None)
Quarter: 2008Q2

REPORT INFORMATION
  Report Type: 
  Country: None (occurrence: None)
  Receive Date: 20080508
  Receipt Date: 20080428
  Transmission Date: 20081010
  Serious: Yes (Other)
  Sender: FDA-Public Use
  Company Number: SE-ABBOTT-08P-150-0450377-00

PATIENT

DRUGS (1)
  1. HUMIRA [Suspect]
     Indication: CROHN'S DISEASE
     Dates: start: 20071201

REACTIONS (3)
  - CEREBROVASCULAR ACCIDENT [None]
  - DRUG ERUPTION [None]
  - THROMBOTIC THROMBOCYTOPENIC PURPURA [None]
